FAERS Safety Report 15426968 (Version 1)
Quarter: 2018Q3

REPORT INFORMATION
  Report Type: Spontaneous
  Country: US (occurrence: US)
  Receive Date: 20180925
  Receipt Date: 20180925
  Transmission Date: 20181010
  Serious: No
  Sender: FDA-Public Use
  Company Number: US-INDIVIOR LIMITED-INDV-108760-2018

PATIENT
  Sex: Female

DRUGS (3)
  1. PRENATAL VITAMINS                  /07499601/ [Concomitant]
     Active Substance: VITAMINS
     Indication: PRODUCT USED FOR UNKNOWN INDICATION
     Dosage: UNK
     Route: 065
  2. SUBOXONE [Suspect]
     Active Substance: BUPRENORPHINE HYDROCHLORIDE\NALOXONE HYDROCHLORIDE
     Indication: DRUG DEPENDENCE
     Dosage: 8 MG, TID
     Route: 060
  3. BUPRENORPHINE/NALOXONE GENERIC [Suspect]
     Active Substance: BUPRENORPHINE\NALOXONE
     Indication: DRUG DEPENDENCE
     Dosage: 8 MG, BID
     Route: 060

REACTIONS (10)
  - Product use issue [Unknown]
  - Drug withdrawal syndrome [Recovered/Resolved]
  - Rhinorrhoea [Recovered/Resolved]
  - Abdominal discomfort [Recovered/Resolved]
  - Therapeutic response decreased [Unknown]
  - Insomnia [Recovered/Resolved]
  - Nasopharyngitis [Recovered/Resolved]
  - Mood swings [Recovered/Resolved]
  - Oral administration complication [Unknown]
  - Maternal exposure during pregnancy [Recovered/Resolved]
